FAERS Safety Report 7137708-3 (Version None)
Quarter: 2010Q4

REPORT INFORMATION
  Report Type: 
  Country: None (occurrence: None)
  Receive Date: 20101206
  Receipt Date: 20101206
  Transmission Date: 20110411
  Serious: Yes (Other)
  Sender: FDA-Public Use
  Company Number: US-JNJFOC-20101108500

PATIENT

DRUGS (5)
  1. DOXIL [Suspect]
     Indication: METASTATIC NEOPLASM
     Dosage: 20-35 MG/M2 OVER 1 HOUR ON ON DAY 1, 4 WEEK CYCLES.
     Route: 042
  2. CISPLATIN [Suspect]
     Indication: METASTATIC NEOPLASM
     Dosage: 100-125 MG/M2 ON DAY 1 OVER 2 HOURS, 4 WEEK CYCLES
     Route: 013
  3. HEPARIN [Suspect]
     Indication: PRODUCT USED FOR UNKNOWN INDICATION
     Dosage: ON DAY 1, OVER 2 HOURS, 4 WEEK CYCLES
     Route: 013
  4. DEXAMETHASONE [Suspect]
     Indication: PRODUCT USED FOR UNKNOWN INDICATION
     Dosage: ON DAY 1 PRIOR TO CHEMOTHERAPY, 4 WEEK CYCLES
     Route: 042
  5. DEXAMETHASONE [Suspect]
     Dosage: ON DAYS 1-5 FOLLOWING CHEMOTHERAPY, 4 WEEK CYCLES
     Route: 042

REACTIONS (1)
  - HYPERKALAEMIA [None]
